FAERS Safety Report 10051433 (Version 1)
Quarter: 2014Q2

REPORT INFORMATION
  Report Type: Spontaneous
  Country: US (occurrence: US)
  Receive Date: 20140401
  Receipt Date: 20140401
  Transmission Date: 20141212
  Serious: No
  Sender: FDA-Public Use
  Company Number: US-PFIZER INC-2014091922

PATIENT
  Age: 73 Year
  Sex: Female
  Weight: 63.49 kg

DRUGS (7)
  1. ZITHROMAX [Suspect]
     Indication: UPPER RESPIRATORY TRACT INFECTION
     Dosage: UNK
     Dates: start: 20140324, end: 201403
  2. LISINOPRIL [Concomitant]
     Indication: HYPERTENSION
     Dosage: UNK
  3. LIPITOR [Concomitant]
     Dosage: UNK
  4. BENZONATATE [Concomitant]
     Indication: COUGH
     Dosage: 100 MG, UNK
     Dates: start: 201403
  5. XELJANZ [Concomitant]
     Indication: ARTHRITIS
     Dosage: 5 MG, 2X/DAY
     Route: 048
     Dates: start: 20140308
  6. XELJANZ [Concomitant]
     Indication: ARTHRITIS
  7. XELJANZ [Concomitant]
     Indication: ARTHRITIS

REACTIONS (1)
  - Drug ineffective [Unknown]
